FAERS Safety Report 20865016 (Version 2)
Quarter: 2022Q2

REPORT INFORMATION
  Report Type: Report from Study
  Country: US (occurrence: US)
  Receive Date: 20220524
  Receipt Date: 20220623
  Transmission Date: 20220721
  Serious: Yes (Other)
  Sender: FDA-Public Use
  Company Number: US-CELGENE-USA-20220303127

PATIENT
  Age: 69 Year
  Sex: Female
  Weight: 63.5 kg

DRUGS (10)
  1. REVLIMID [Suspect]
     Active Substance: LENALIDOMIDE
     Indication: Plasma cell myeloma
     Dosage: 25 MILLIGRAM
     Route: 048
     Dates: start: 20170329
  2. REVLIMID [Suspect]
     Active Substance: LENALIDOMIDE
     Dosage: 15 MILLIGRAM
     Route: 048
     Dates: start: 201711
  3. REVLIMID [Suspect]
     Active Substance: LENALIDOMIDE
     Dosage: 10 MILLIGRAM
     Route: 048
     Dates: start: 201801
  4. REVLIMID [Suspect]
     Active Substance: LENALIDOMIDE
     Dosage: 1 CAPSULE DAILY?LOT EXPIRATION 30-SEP-2024
     Route: 048
     Dates: start: 20170329
  5. NINLARO [Concomitant]
     Active Substance: IXAZOMIB CITRATE
     Indication: Product used for unknown indication
     Dosage: FREQUENCY TEXT: NOT PROVIDED
     Route: 065
  6. DEXAMETHASONE [Concomitant]
     Active Substance: DEXAMETHASONE
     Indication: Product used for unknown indication
     Dosage: FREQUENCY TEXT: NOT PROVIDED
     Route: 065
  7. ASPIRIN [Concomitant]
     Active Substance: ASPIRIN
     Indication: Product used for unknown indication
     Dosage: FREQUENCY TEXT: NOT PROVIDED
     Route: 065
  8. LOPERAMIDE HYDROCHLORIDE [Concomitant]
     Active Substance: LOPERAMIDE HYDROCHLORIDE
     Indication: Product used for unknown indication
     Route: 065
  9. TETRACYCLINE HYDROCHLORIDE [Concomitant]
     Active Substance: TETRACYCLINE HYDROCHLORIDE
     Indication: Product used for unknown indication
     Route: 065
  10. ZANTAC [Concomitant]
     Active Substance: RANITIDINE HYDROCHLORIDE
     Indication: Product used for unknown indication
     Route: 065

REACTIONS (2)
  - Recurrent cancer [Unknown]
  - Diarrhoea [Unknown]
